FAERS Safety Report 9552589 (Version 2)
Quarter: 2013Q4

REPORT INFORMATION
  Report Type: Spontaneous
  Country: US (occurrence: US)
  Receive Date: 20130925
  Receipt Date: 20131028
  Transmission Date: 20140711
  Serious: Yes (Other)
  Sender: FDA-Public Use
  Company Number: US-PFIZER INC-2013275472

PATIENT
  Sex: Male
  Weight: 90.7 kg

DRUGS (2)
  1. AMIODARONE HCL [Suspect]
     Indication: ATRIAL FIBRILLATION
     Dosage: UNK
  2. DIAZEPAM [Concomitant]
     Indication: SLEEP DISORDER
     Dosage: 10 MG, DAILY

REACTIONS (1)
  - Drug ineffective [Unknown]
